FAERS Safety Report 8243676-3 (Version None)
Quarter: 2012Q1

REPORT INFORMATION
  Report Type: 
  Country: None (occurrence: None)
  Receive Date: 20120329
  Receipt Date: 20120319
  Transmission Date: 20120608
  Serious: Yes (Other)
  Sender: FDA-Public Use
  Company Number: US-NOVEN-12US004329

PATIENT
  Sex: Female
  Weight: 117 kg

DRUGS (7)
  1. LEVOTHYROXINE SODIUM [Concomitant]
     Indication: THYROID DISORDER
     Dosage: 150 UG, UNK
  2. ABILIFY [Concomitant]
     Indication: AFFECTIVE DISORDER
     Dosage: UNK
  3. ASPIRIN [Concomitant]
     Indication: PRODUCT USED FOR UNKNOWN INDICATION
     Dosage: 325 MG, UNK
  4. TRAMADOL HCL [Concomitant]
     Indication: PRODUCT USED FOR UNKNOWN INDICATION
     Dosage: UNK
  5. SERTRALINE HYDROCHLORIDE [Concomitant]
     Indication: BIPOLAR DISORDER
     Dosage: 100 MG, QD OFF AND ON FOR 20 YEARS
  6. LITHOBID [Suspect]
     Indication: AFFECTIVE DISORDER
     Dosage: 900 MG, QD
  7. SERTRALINE HYDROCHLORIDE [Concomitant]
     Dosage: 200 MG, QD

REACTIONS (6)
  - SUICIDAL IDEATION [None]
  - BLOOD PRESSURE INCREASED [None]
  - WEIGHT INCREASED [None]
  - INSOMNIA [None]
  - CEREBROVASCULAR ACCIDENT [None]
  - DEPRESSION [None]
